FAERS Safety Report 18264128 (Version 1)
Quarter: 2020Q3

REPORT INFORMATION
  Report Type: Spontaneous
  Country: US (occurrence: US)
  Receive Date: 20200914
  Receipt Date: 20200914
  Transmission Date: 20201103
  Serious: No
  Sender: FDA-Public Use
  Company Number: US-ELI_LILLY_AND_COMPANY-US202009005872

PATIENT
  Sex: Female
  Weight: 40.82 kg

DRUGS (4)
  1. RETEVMO [Suspect]
     Active Substance: SELPERCATINIB
     Indication: NON-SMALL CELL LUNG CANCER
  2. RETEVMO [Suspect]
     Active Substance: SELPERCATINIB
     Dosage: UNK
  3. RETEVMO [Suspect]
     Active Substance: SELPERCATINIB
     Dosage: 120 MG
     Route: 065
  4. RETEVMO [Suspect]
     Active Substance: SELPERCATINIB
     Dosage: UNK
     Route: 065

REACTIONS (1)
  - Pyrexia [Recovered/Resolved]
